FAERS Safety Report 4832218-8 (Version None)
Quarter: 2005Q4

REPORT INFORMATION
  Report Type: 
  Country: None (occurrence: None)
  Receive Date: 20051115
  Receipt Date: 20051031
  Transmission Date: 20060501
  Serious: Yes (Hospitalization, Disabling)
  Sender: FDA-Public Use
  Company Number: 376876

PATIENT
  Age: 17 Year
  Sex: Male
  Weight: 128.8 kg

DRUGS (1)
  1. ACCUTANE [Suspect]
     Indication: ACNE
     Dates: start: 19850615

REACTIONS (72)
  - ABDOMINAL PAIN UPPER [None]
  - ABSCESS INTESTINAL [None]
  - ANAEMIA [None]
  - ANAL FISSURE [None]
  - ANASTOMOTIC COMPLICATION [None]
  - ANXIETY [None]
  - APHAGIA [None]
  - APPENDICITIS [None]
  - ARTHRALGIA [None]
  - ASTHENIA [None]
  - ATRIOVENTRICULAR BLOCK FIRST DEGREE [None]
  - BACK PAIN [None]
  - BLOOD CHOLESTEROL INCREASED [None]
  - CELLULITIS [None]
  - COLITIS [None]
  - COLITIS ULCERATIVE [None]
  - CONJUNCTIVITIS [None]
  - DEPRESSION [None]
  - DIARRHOEA [None]
  - DIZZINESS [None]
  - DYSPEPSIA [None]
  - ELECTROCARDIOGRAM ABNORMAL [None]
  - EOSINOPHIL COUNT DECREASED [None]
  - FLATULENCE [None]
  - GASTROINTESTINAL DISORDER [None]
  - GASTROINTESTINAL STOMA COMPLICATION [None]
  - HAEMORRHOIDS [None]
  - HIGH DENSITY LIPOPROTEIN DECREASED [None]
  - HYPERSENSITIVITY [None]
  - HYPERTENSION [None]
  - INFLAMMATORY BOWEL DISEASE [None]
  - INJURY [None]
  - INSOMNIA [None]
  - INTESTINAL HAEMORRHAGE [None]
  - IRRITABLE BOWEL SYNDROME [None]
  - LABYRINTHITIS [None]
  - LARGE INTESTINAL ULCER [None]
  - LIGAMENT INJURY [None]
  - LYMPHOCYTE COUNT DECREASED [None]
  - MELANOCYTIC NAEVUS [None]
  - MONOCYTE COUNT DECREASED [None]
  - MULTI-ORGAN DISORDER [None]
  - NASAL SEPTUM DEVIATION [None]
  - NEUTROPHIL COUNT INCREASED [None]
  - OBESITY [None]
  - OBSTRUCTIVE AIRWAYS DISORDER [None]
  - PAIN [None]
  - PALPITATIONS [None]
  - PANIC ATTACK [None]
  - PETECHIAE [None]
  - PILONIDAL CYST [None]
  - PROCEDURAL SITE REACTION [None]
  - PROCTALGIA [None]
  - PROCTITIS ULCERATIVE [None]
  - PROSTATITIS [None]
  - PSEUDOPOLYP [None]
  - RECTAL HAEMORRHAGE [None]
  - RHINITIS [None]
  - SCAR [None]
  - SINUS CONGESTION [None]
  - SINUSITIS [None]
  - SKIN HYPERTROPHY [None]
  - SKIN IRRITATION [None]
  - SLEEP APNOEA SYNDROME [None]
  - SPORTS INJURY [None]
  - STRESS [None]
  - TACHYCARDIA [None]
  - TINNITUS [None]
  - UPPER RESPIRATORY TRACT INFECTION [None]
  - VERTIGO [None]
  - VIRAL INFECTION [None]
  - VIRAL UPPER RESPIRATORY TRACT INFECTION [None]
